FAERS Safety Report 6333889-X (Version None)
Quarter: 2009Q3

REPORT INFORMATION
  Report Type: 
  Country: None (occurrence: None)
  Receive Date: 20090829
  Receipt Date: 20090724
  Transmission Date: 20100115
  Serious: No
  Sender: FDA-Public Use
  Company Number: US-ABBOTT-09P-163-0580543-00

PATIENT
  Sex: Male

DRUGS (3)
  1. SIMCOR [Suspect]
     Indication: HIGH DENSITY LIPOPROTEIN DECREASED
     Dosage: FORM: 500/20 MILLIGRAMS
     Dates: start: 20090602
  2. SIMCOR [Suspect]
     Indication: LOW DENSITY LIPOPROTEIN INCREASED
  3. NORCO [Concomitant]
     Indication: PAIN

REACTIONS (4)
  - FLUSHING [None]
  - HEADACHE [None]
  - INSOMNIA [None]
  - NIGHT SWEATS [None]
